FAERS Safety Report 13699241 (Version 2)
Quarter: 2017Q4

REPORT INFORMATION
  Report Type: Spontaneous
  Country: US (occurrence: US)
  Receive Date: 20170628
  Receipt Date: 20171005
  Transmission Date: 20180320
  Serious: Yes (Hospitalization)
  Sender: FDA-Public Use
  Company Number: US-JNJFOC-20170626112

PATIENT
  Sex: Female

DRUGS (20)
  1. LISINOPRIL. [Concomitant]
     Active Substance: LISINOPRIL
  2. VENLAFAXINE [Concomitant]
     Active Substance: VENLAFAXINE HYDROCHLORIDE
  3. WARFARIN [Concomitant]
     Active Substance: WARFARIN
  4. FUROSEMIDE. [Concomitant]
     Active Substance: FUROSEMIDE
  5. LANTUS [Concomitant]
     Active Substance: INSULIN GLARGINE
  6. LEVOTHYROXINE. [Concomitant]
     Active Substance: LEVOTHYROXINE
  7. SPIRONOLACTONE. [Concomitant]
     Active Substance: SPIRONOLACTONE
  8. CALCIUM CARBONATE. [Concomitant]
     Active Substance: CALCIUM CARBONATE
  9. CARVEDILOL. [Concomitant]
     Active Substance: CARVEDILOL
  10. CITALOPRAM [Concomitant]
     Active Substance: CITALOPRAM HYDROBROMIDE
  11. GABAPENTIN. [Concomitant]
     Active Substance: GABAPENTIN
  12. RED YEAST RICE [Concomitant]
     Active Substance: DIETARY SUPPLEMENT
  13. ZOPIDEM [Concomitant]
     Active Substance: ZOLPIDEM\ZOLPIDEM TARTRATE
  14. VITAMIN D [Concomitant]
     Active Substance: CHOLECALCIFEROL
  15. IMBRUVICA [Suspect]
     Active Substance: IBRUTINIB
     Indication: MANTLE CELL LYMPHOMA
     Route: 048
     Dates: start: 20170523, end: 2017
  16. HUMALOG [Concomitant]
     Active Substance: INSULIN LISPRO
  17. POTASSIUM CHLORIDE. [Concomitant]
     Active Substance: POTASSIUM CHLORIDE
  18. IMBRUVICA [Suspect]
     Active Substance: IBRUTINIB
     Indication: MANTLE CELL LYMPHOMA
     Route: 048
     Dates: start: 20160523, end: 20170619
  19. MUCINEX [Concomitant]
     Active Substance: GUAIFENESIN
  20. PRESERVISION AREDS [Concomitant]
     Active Substance: MINERALS\VITAMINS

REACTIONS (2)
  - Fall [Unknown]
  - Rotator cuff syndrome [Unknown]
